FAERS Safety Report 7519667-4 (Version None)
Quarter: 2011Q2

REPORT INFORMATION
  Report Type: 
  Country: None (occurrence: None)
  Receive Date: 20110602
  Receipt Date: 20110527
  Transmission Date: 20111010
  Serious: Yes (Other)
  Sender: FDA-Public Use
  Company Number: B0723274A

PATIENT
  Age: 13 Year
  Sex: Male
  Weight: 52.9 kg

DRUGS (3)
  1. ARRANON [Suspect]
     Dosage: 650MGM2 PER DAY
     Route: 042
     Dates: start: 20080304, end: 20080308
  2. CYTARABINE [Concomitant]
     Indication: NEOPLASM MALIGNANT
     Route: 042
     Dates: start: 20080202, end: 20080202
  3. KYTRIL [Concomitant]
     Indication: PROPHYLAXIS OF NAUSEA AND VOMITING
     Route: 042
     Dates: start: 20080304, end: 20080308

REACTIONS (3)
  - WHITE BLOOD CELL COUNT DECREASED [None]
  - PLATELET COUNT DECREASED [None]
  - HAEMOGLOBIN DECREASED [None]
